FAERS Safety Report 18724551 (Version 1)
Quarter: 2021Q1

REPORT INFORMATION
  Report Type: Spontaneous
  Country: IT (occurrence: IT)
  Receive Date: 20210111
  Receipt Date: 20210111
  Transmission Date: 20210419
  Serious: Yes (Other)
  Sender: FDA-Public Use
  Company Number: IT-TEVA-2021-IT-1866709

PATIENT
  Age: 72 Year
  Sex: Female

DRUGS (4)
  1. OLANZAPINA TEVA [Suspect]
     Active Substance: OLANZAPINE
     Dosage: 0.5?1?DOSAGE FORM DAILY
     Dates: start: 202009, end: 20201225
  2. ATENOLOL. [Concomitant]
     Active Substance: ATENOLOL
  3. DOXAZOSINE [Concomitant]
     Active Substance: DOXAZOSIN MESYLATE
  4. AMLODIPINE. [Concomitant]

REACTIONS (4)
  - Vision blurred [Not Recovered/Not Resolved]
  - Visual impairment [Not Recovered/Not Resolved]
  - Macular hole [Not Recovered/Not Resolved]
  - Visual field defect [Not Recovered/Not Resolved]

NARRATIVE: CASE EVENT DATE: 202011
